FAERS Safety Report 7339020-6 (Version None)
Quarter: 2011Q1

REPORT INFORMATION
  Report Type: 
  Country: None (occurrence: None)
  Receive Date: 20110228
  Receipt Date: 20110210
  Transmission Date: 20110831
  Serious: Yes (Other)
  Sender: FDA-Public Use
  Company Number: 2011000715

PATIENT
  Age: 75 Year
  Sex: Female

DRUGS (2)
  1. TARCEVA [Suspect]
     Indication: NON-SMALL CELL LUNG CANCER
     Dosage: (150 MG,QD), ORAL
     Dates: start: 20070201, end: 20090201
  2. PEMETEREXED (PEMETEREXED) [Concomitant]

REACTIONS (2)
  - RETINOPATHY [None]
  - SKIN TOXICITY [None]
